FAERS Safety Report 9760582 (Version 1)
Quarter: 2013Q4

REPORT INFORMATION
  Report Type: Spontaneous
  Country: US (occurrence: US)
  Receive Date: 20131216
  Receipt Date: 20131216
  Transmission Date: 20140711
  Serious: No
  Sender: FDA-Public Use
  Company Number: US-BIOGENIDEC-2013BI093045

PATIENT
  Sex: Female

DRUGS (15)
  1. TECFIDERA [Suspect]
     Indication: MULTIPLE SCLEROSIS
     Route: 048
     Dates: start: 20130910
  2. ONDANSETRON HCL [Concomitant]
  3. TRAZODONE HCL [Concomitant]
  4. AGGRENOX [Concomitant]
  5. CALCIUM [Concomitant]
  6. CARBAMAZEPINE [Concomitant]
  7. LISINOPRIL [Concomitant]
  8. METFORMIN HCL [Concomitant]
  9. METOPROLOL TARTRATE [Concomitant]
  10. NIACIN [Concomitant]
  11. OMEPRAZOLE [Concomitant]
  12. PRILOSEC [Concomitant]
  13. SIMVASTATIN [Concomitant]
  14. TYLENOL [Concomitant]
  15. VITAMIN C [Concomitant]

REACTIONS (1)
  - Nausea [Unknown]
